FAERS Safety Report 11274788 (Version 3)
Quarter: 2015Q3

REPORT INFORMATION
  Report Type: Spontaneous
  Country: GB (occurrence: GB)
  Receive Date: 20150716
  Receipt Date: 20150924
  Transmission Date: 20151125
  Serious: Yes (Hospitalization, Other)
  Sender: FDA-Public Use
  Company Number: GB-ROCHE-1606738

PATIENT
  Age: 55 Year
  Sex: Female

DRUGS (1)
  1. HERCEPTIN [Suspect]
     Active Substance: TRASTUZUMAB
     Indication: PRODUCT USED FOR UNKNOWN INDICATION
     Route: 058

REACTIONS (20)
  - Chest pain [Unknown]
  - Sternal fracture [Unknown]
  - Dyspnoea [Unknown]
  - Rhinorrhoea [Unknown]
  - Chest discomfort [Unknown]
  - Eye pruritus [Unknown]
  - Sneezing [Unknown]
  - Rhinitis [Unknown]
  - Depression [Unknown]
  - Blood calcium increased [Unknown]
  - Scab [Recovering/Resolving]
  - Seasonal allergy [Unknown]
  - Depressed mood [Unknown]
  - Nasal discomfort [Not Recovered/Not Resolved]
  - Lacrimation increased [Unknown]
  - Onychoclasis [Recovered/Resolved]
  - Fall [Unknown]
  - Diarrhoea [Unknown]
  - Eczema [Unknown]
  - Fatigue [Not Recovered/Not Resolved]

NARRATIVE: CASE EVENT DATE: 201501
